FAERS Safety Report 5698381-4 (Version None)
Quarter: 2008Q2

REPORT INFORMATION
  Report Type: 
  Country: None (occurrence: None)
  Receive Date: 20080403
  Receipt Date: 20080328
  Transmission Date: 20081010
  Serious: Yes (Hospitalization)
  Sender: FDA-Public Use
  Company Number: 2008SP006195

PATIENT
  Age: 17 Year
  Sex: Male
  Weight: 56.3 kg

DRUGS (7)
  1. TEMODAL [Suspect]
     Indication: ASTROCYTOMA
     Dosage: 285 MG; QD; PO; 290 MG; QD; PO
     Route: 048
     Dates: end: 20080212
  2. TEMODAL [Suspect]
     Indication: ASTROCYTOMA
     Dosage: 285 MG; QD; PO; 290 MG; QD; PO
     Route: 048
     Dates: start: 20070205
  3. ETOPOSIDE [Suspect]
     Indication: ASTROCYTOMA
     Dosage: 80 MG; QD; IV
     Route: 042
     Dates: start: 20070205, end: 20080215
  4. CODEINE (CON.) [Concomitant]
  5. DIMENHYDRINATE (CON.) [Concomitant]
  6. COTRIMOXAZOLE (CON.) [Concomitant]
  7. ONDANSETRON (CON.) [Concomitant]

REACTIONS (4)
  - BRAIN OEDEMA [None]
  - INTRACRANIAL TUMOUR HAEMORRHAGE [None]
  - NEOPLASM PROGRESSION [None]
  - PHOTOPHOBIA [None]
